FAERS Safety Report 8382398-5 (Version None)
Quarter: 2012Q2

REPORT INFORMATION
  Report Type: 
  Country: None (occurrence: None)
  Receive Date: 20120522
  Receipt Date: 20111212
  Transmission Date: 20120825
  Serious: Yes (Hospitalization)
  Sender: FDA-Public Use
  Company Number: 2011-05192

PATIENT
  Age: 77 Year
  Sex: Male

DRUGS (8)
  1. PERINDOPRIL ERBUMINE [Concomitant]
  2. IMMUCYST [Suspect]
     Indication: PRODUCT USED FOR UNKNOWN INDICATION
     Dosage: 81.0 MG,
     Dates: start: 20110601, end: 20110601
  3. CARVEDILOL [Concomitant]
  4. DIGOXIN [Concomitant]
  5. SUCRALFATE [Concomitant]
  6. SIMVASTATIN [Concomitant]
  7. ZOLADEX INFECTION [Concomitant]
  8. OMEPRAZOLE [Concomitant]

REACTIONS (6)
  - PULMONARY OEDEMA [None]
  - SEPSIS [None]
  - NAUSEA [None]
  - ACUTE LEFT VENTRICULAR FAILURE [None]
  - CIRCULATORY COLLAPSE [None]
  - CONFUSIONAL STATE [None]
